FAERS Safety Report 11090261 (Version 1)
Quarter: 2015Q2

REPORT INFORMATION
  Report Type: Spontaneous
  Country: FR (occurrence: FR)
  Receive Date: 20150505
  Receipt Date: 20150505
  Transmission Date: 20150821
  Serious: Yes (Hospitalization, Disabling)
  Sender: FDA-Public Use
  Company Number: FR-PFIZER INC-2015148513

PATIENT
  Age: 12 Year
  Sex: Female

DRUGS (6)
  1. VFEND [Suspect]
     Active Substance: VORICONAZOLE
     Indication: FUNGAL INFECTION
     Dosage: 150 MG, 2X/DAY
     Route: 042
     Dates: start: 20100729, end: 20100803
  2. TEGELINE [Concomitant]
     Active Substance: HUMAN IMMUNOGLOBULIN G
     Dosage: UNK UNK, SINGLE
     Route: 042
     Dates: start: 20100709, end: 20100709
  3. NEORAL [Concomitant]
     Active Substance: CYCLOSPORINE
     Dosage: 0.5 ML, 2X/DAY
     Dates: start: 2007
  4. NEORAL [Concomitant]
     Active Substance: CYCLOSPORINE
     Dosage: 0.3 ML, 2X/DAY
     Dates: start: 201008
  5. VFEND [Suspect]
     Active Substance: VORICONAZOLE
     Indication: FUNGAL INFECTION
     Dosage: 200 MG, 2X/DAY
     Route: 048
     Dates: start: 20100804, end: 20100810
  6. BACTRIM [Concomitant]
     Active Substance: SULFAMETHOXAZOLE\TRIMETHOPRIM

REACTIONS (4)
  - Keratitis [Recovered/Resolved with Sequelae]
  - Visual acuity reduced [Not Recovered/Not Resolved]
  - Acute kidney injury [Unknown]
  - Glaucoma [Recovered/Resolved with Sequelae]

NARRATIVE: CASE EVENT DATE: 20100810
